FAERS Safety Report 10236634 (Version 1)
Quarter: 2014Q2

REPORT INFORMATION
  Report Type: Spontaneous
  Country: DE (occurrence: DE)
  Receive Date: 20140613
  Receipt Date: 20140613
  Transmission Date: 20141212
  Serious: Yes (Other)
  Sender: FDA-Public Use
  Company Number: DE-WATSON-2014-12502

PATIENT
  Age: 53 Year
  Sex: Male

DRUGS (11)
  1. MIRTAZAPINE (UNKNOWN) [Suspect]
     Indication: PRODUCT USED FOR UNKNOWN INDICATION
     Dosage: 15 MG, DAILY
     Route: 048
     Dates: start: 20120815, end: 20120821
  2. MIRTAZAPINE (UNKNOWN) [Suspect]
     Dosage: 30 MG, DAILY
     Route: 048
     Dates: start: 20120822, end: 20120826
  3. MIRTAZAPINE (UNKNOWN) [Suspect]
     Dosage: 30 MG, DAILY
     Route: 048
     Dates: start: 20120906, end: 20120911
  4. PROMETHAZINE (UNKNOWN) [Suspect]
     Indication: PRODUCT USED FOR UNKNOWN INDICATION
     Dosage: 100 MG, DAILY
     Route: 048
     Dates: start: 20120822, end: 20120828
  5. PROMETHAZINE (UNKNOWN) [Suspect]
     Dosage: 125 MG, DAILY
     Route: 048
     Dates: start: 20120829, end: 20120905
  6. PROMETHAZINE (UNKNOWN) [Suspect]
     Dosage: 25 MG, DAILY
     Route: 048
     Dates: start: 20120906
  7. DOXEPIN [Concomitant]
     Indication: PRODUCT USED FOR UNKNOWN INDICATION
     Dosage: 300 MG, DAILY
     Route: 048
     Dates: end: 20120810
  8. DOXEPIN [Concomitant]
     Dosage: 200 MG, DAILY
     Route: 048
     Dates: start: 20120811, end: 20120815
  9. DOXEPIN [Concomitant]
     Dosage: 100 MG, DAILY
     Route: 048
     Dates: start: 20120816, end: 20120905
  10. DOXEPIN [Concomitant]
     Dosage: 50 MG, DAILY
     Route: 048
     Dates: start: 20120906, end: 20120912
  11. MELPERON [Concomitant]
     Indication: PRODUCT USED FOR UNKNOWN INDICATION
     Dosage: 50 MG, DAILY
     Route: 048
     Dates: start: 20120810, end: 20120826

REACTIONS (1)
  - Oedema [Recovering/Resolving]
